FAERS Safety Report 16022368 (Version 2)
Quarter: 2019Q1

REPORT INFORMATION
  Report Type: Spontaneous
  Country: CH (occurrence: CH)
  Receive Date: 20190301
  Receipt Date: 20190322
  Transmission Date: 20190418
  Serious: Yes (Other)
  Sender: FDA-Public Use
  Company Number: PHHY2019CH045337

PATIENT
  Sex: Male

DRUGS (1)
  1. REVOLADE [Suspect]
     Active Substance: ELTROMBOPAG
     Indication: APLASTIC ANAEMIA
     Dosage: 125 MG, QD
     Route: 065
     Dates: start: 20180324

REACTIONS (3)
  - Thrombocytopenia [Recovered/Resolved]
  - Immune thrombocytopenic purpura [Unknown]
  - Off label use [Unknown]

NARRATIVE: CASE EVENT DATE: 201806
